FAERS Safety Report 14768169 (Version 1)
Quarter: 2018Q2

REPORT INFORMATION
  Report Type: Spontaneous
  Country: DE (occurrence: DE)
  Receive Date: 20180417
  Receipt Date: 20180417
  Transmission Date: 20180711
  Serious: Yes (Life-Threatening, Other)
  Sender: FDA-Public Use
  Company Number: DE-009507513-1804DEU006631

PATIENT
  Age: 39 Year
  Sex: Male

DRUGS (8)
  1. OLANZAPINE. [Suspect]
     Active Substance: OLANZAPINE
  2. LORAZEPAM. [Suspect]
     Active Substance: LORAZEPAM
  3. TEMAZEPAM. [Suspect]
     Active Substance: TEMAZEPAM
  4. MIRTAZAPINE. [Suspect]
     Active Substance: MIRTAZAPINE
  5. METHYLENE CHLORIDE\TOLUENE. [Suspect]
     Active Substance: METHYLENE CHLORIDE\TOLUENE
  6. OXAZEPAM. [Suspect]
     Active Substance: OXAZEPAM
  7. NORDAZEPAM [Suspect]
     Active Substance: NORDAZEPAM
  8. DIAZEPAM. [Suspect]
     Active Substance: DIAZEPAM

REACTIONS (7)
  - Abnormal behaviour [Unknown]
  - Homicide [Unknown]
  - Aggression [Unknown]
  - Toxicity to various agents [Unknown]
  - Memory impairment [Unknown]
  - Logorrhoea [Unknown]
  - Depression [Unknown]
